FAERS Safety Report 14802574 (Version 8)
Quarter: 2020Q2

REPORT INFORMATION
  Report Type: Spontaneous
  Country: US (occurrence: US)
  Receive Date: 20180424
  Receipt Date: 20200508
  Transmission Date: 20200713
  Serious: Yes (Hospitalization)
  Sender: FDA-Public Use
  Company Number: US-ACTELION-A-NJ2018-171000

PATIENT
  Age: 63 Year
  Sex: Female

DRUGS (4)
  1. OMEPRAZOLE. [Concomitant]
     Active Substance: OMEPRAZOLE
  2. OPSUMIT [Suspect]
     Active Substance: MACITENTAN
     Indication: PULMONARY HYPERTENSION
     Dosage: 10 MG, QD
     Route: 048
     Dates: start: 20161205
  3. UPTRAVI [Suspect]
     Active Substance: SELEXIPAG
     Indication: PULMONARY HYPERTENSION
     Route: 048
  4. SILDENAFIL. [Concomitant]
     Active Substance: SILDENAFIL

REACTIONS (16)
  - Aortic valve repair [Recovered/Resolved]
  - Gastrointestinal haemorrhage [Recovered/Resolved]
  - Haemoglobin decreased [Recovering/Resolving]
  - Packed red blood cell transfusion [Unknown]
  - White blood cell count decreased [Unknown]
  - Gastric disorder [Unknown]
  - Aortic stenosis [Unknown]
  - Dyspnoea [Recovered/Resolved]
  - Sepsis [Unknown]
  - Influenza like illness [Recovered/Resolved]
  - Pulmonary hypertension [Unknown]
  - Pneumonia [Unknown]
  - Hospitalisation [Unknown]
  - Dyspnoea exertional [Recovered/Resolved]
  - Anaemia [Unknown]
  - Condition aggravated [Unknown]

NARRATIVE: CASE EVENT DATE: 20171125
